FAERS Safety Report 7099469-6 (Version None)
Quarter: 2010Q4

REPORT INFORMATION
  Report Type: 
  Country: None (occurrence: None)
  Receive Date: 20101104
  Receipt Date: 20101021
  Transmission Date: 20110411
  Serious: Yes (Other)
  Sender: FDA-Public Use
  Company Number: ACO_02904_2010

PATIENT
  Sex: Female
  Weight: 74.3899 kg

DRUGS (5)
  1. AMPYRA [Suspect]
     Indication: GAIT DISTURBANCE
     Dosage: (10 MG BID ORAL)
     Route: 048
     Dates: start: 20100101, end: 20101020
  2. COPAXONE [Concomitant]
  3. CYMBALTA [Concomitant]
  4. LISINOPRIL [Concomitant]
  5. NORTRIPTYLINE HCL [Concomitant]

REACTIONS (3)
  - AGGRESSION [None]
  - ANGER [None]
  - MEMORY IMPAIRMENT [None]
